FAERS Safety Report 19170073 (Version 1)
Quarter: 2021Q2

REPORT INFORMATION
  Report Type: Spontaneous
  Country: US (occurrence: US)
  Receive Date: 20210422
  Receipt Date: 20210422
  Transmission Date: 20210717
  Serious: Yes (Other)
  Sender: FDA-Public Use
  Company Number: US-MALLINCKRODT PHARMACEUTICALS-T202101688

PATIENT
  Sex: Male
  Weight: 170 kg

DRUGS (3)
  1. H.P. ACTHAR [Suspect]
     Active Substance: CORTICOTROPIN
     Dosage: 80 UNITS/1 MILLILITER, TWICE A WEEK
     Route: 058
  2. H.P. ACTHAR [Suspect]
     Active Substance: CORTICOTROPIN
     Indication: PULMONARY SARCOIDOSIS
     Dosage: 80 UNITS/1 MILLILITER, TWICE A WEEK
     Route: 058
  3. H.P. ACTHAR [Suspect]
     Active Substance: CORTICOTROPIN
     Dosage: 80 UNITS,  ONCE A WEEK
     Route: 058

REACTIONS (5)
  - Dupuytren^s contracture operation [Unknown]
  - Limb injury [Unknown]
  - Dupuytren^s contracture [Unknown]
  - Dyspnoea [Unknown]
  - Cough [Unknown]
